FAERS Safety Report 7806548-1 (Version None)
Quarter: 2011Q4

REPORT INFORMATION
  Report Type: 
  Country: None (occurrence: None)
  Receive Date: 20111011
  Receipt Date: 20110926
  Transmission Date: 20120403
  Serious: Yes (Death)
  Sender: FDA-Public Use
  Company Number: RU-TYCO HEALTHCARE/MALLINCKRODT-T201101235

PATIENT
  Sex: Male
  Weight: 96 kg

DRUGS (1)
  1. OPTIRAY 160 [Suspect]
     Indication: ANGIOGRAM
     Dosage: 60 ML, SINGLE
     Route: 013
     Dates: start: 20110505, end: 20110505

REACTIONS (1)
  - ANAPHYLACTIC SHOCK [None]
